FAERS Safety Report 19592434 (Version 1)
Quarter: 2021Q3

REPORT INFORMATION
  Report Type: Spontaneous
  Country: US (occurrence: US)
  Receive Date: 20210721
  Receipt Date: 20210721
  Transmission Date: 20211014
  Serious: No
  Sender: FDA-Public Use
  Company Number: None

PATIENT
  Age: 77 Year
  Sex: Female

DRUGS (12)
  1. MULTIVITAMINS [Concomitant]
     Active Substance: VITAMINS
  2. PERCOCET [Concomitant]
     Active Substance: ACETAMINOPHEN\OXYCODONE HYDROCHLORIDE
  3. CAPECITABINE. [Suspect]
     Active Substance: CAPECITABINE
     Indication: NEOPLASM MALIGNANT
     Route: 048
     Dates: start: 20200916, end: 20210721
  4. PHENERGAN 25MG [Concomitant]
  5. LISINOPRIL. [Concomitant]
     Active Substance: LISINOPRIL
  6. ZOFRAN ODT 4MG [Concomitant]
  7. PANTOPRAZOLE 40MG [Concomitant]
     Active Substance: PANTOPRAZOLE SODIUM
  8. XANAX [Concomitant]
     Active Substance: ALPRAZOLAM
  9. CEFPROZIL 500MG [Concomitant]
     Active Substance: CEFPROZIL
  10. CETIRIZINE [Concomitant]
     Active Substance: CETIRIZINE HYDROCHLORIDE
  11. GABAPENTIN 100MG [Concomitant]
     Active Substance: GABAPENTIN
  12. TRAMADOL 50MG [Concomitant]
     Active Substance: TRAMADOL

REACTIONS (1)
  - Drug ineffective [None]

NARRATIVE: CASE EVENT DATE: 20210721
